FAERS Safety Report 19299220 (Version 2)
Quarter: 2021Q2

REPORT INFORMATION
  Report Type: Spontaneous
  Country: AR (occurrence: AR)
  Receive Date: 20210524
  Receipt Date: 20210527
  Transmission Date: 20210717
  Serious: Yes (Hospitalization, Other)
  Sender: FDA-Public Use
  Company Number: AR-PFIZER INC-2021010022

PATIENT
  Age: 58 Year
  Sex: Female

DRUGS (1)
  1. SUTENT [Suspect]
     Active Substance: SUNITINIB MALATE
     Indication: METASTATIC RENAL CELL CARCINOMA
     Dosage: 50 MG, CYCLIC (DAILY, SCHEME 2/1 REST)
     Dates: start: 20201211, end: 2021

REACTIONS (4)
  - Neoplasm progression [Unknown]
  - Malaise [Unknown]
  - Respiratory arrest [Unknown]
  - Decreased appetite [Unknown]

NARRATIVE: CASE EVENT DATE: 20201211
